FAERS Safety Report 22853744 (Version 4)
Quarter: 2025Q4

REPORT INFORMATION
  Report Type: Report from Study
  Country: EU (occurrence: EU)
  Receive Date: 20230823
  Receipt Date: 20251107
  Transmission Date: 20260117
  Serious: Yes (Hospitalization, Other)
  Sender: AUROBINDO
  Company Number: EU-PFIZER INC-202200010870

PATIENT
  Age: 26 Year
  Sex: Female

DRUGS (6)
  1. PREGABALIN [Suspect]
     Active Substance: PREGABALIN
     Indication: Drug withdrawal syndrome
     Dosage: 12600 MILLIGRAM, ONCE A DAY
     Route: 048
     Dates: start: 2019
  2. PREGABALIN [Suspect]
     Active Substance: PREGABALIN
     Indication: Drug withdrawal syndrome
  3. PREGABALIN [Suspect]
     Active Substance: PREGABALIN
     Indication: Drug abuse
  4. DIAZEPAM [Suspect]
     Active Substance: DIAZEPAM
     Indication: Anxiety
     Dosage: 30 MILLIGRAM, ONCE A DAY
     Route: 065
  5. DIAZEPAM [Suspect]
     Active Substance: DIAZEPAM
     Indication: Drug withdrawal syndrome
  6. TRAMADOL [Concomitant]
     Active Substance: TRAMADOL
     Indication: Product used for unknown indication
     Dosage: UNK
     Route: 065

REACTIONS (15)
  - Anxiety [Unknown]
  - Hyperhidrosis [Unknown]
  - Tachycardia [Unknown]
  - Nausea [Unknown]
  - Pain [Unknown]
  - Psychomotor retardation [Unknown]
  - Drug use disorder [Unknown]
  - Drug abuse [Unknown]
  - Off label use [Unknown]
  - Overdose [Unknown]
  - Drug dependence [Unknown]
  - Withdrawal syndrome [Unknown]
  - Fatigue [Unknown]
  - Intentional overdose [Unknown]
  - Drug withdrawal syndrome [Unknown]

NARRATIVE: CASE EVENT DATE: 20190101
